FAERS Safety Report 12257688 (Version 1)
Quarter: 2016Q2

REPORT INFORMATION
  Report Type: Spontaneous
  Country: RO (occurrence: RO)
  Receive Date: 20160412
  Receipt Date: 20160412
  Transmission Date: 20160815
  Serious: Yes (Hospitalization)
  Sender: FDA-Public Use
  Company Number: RO-BAYER-2016-062514

PATIENT
  Age: 30 Year
  Sex: Female

DRUGS (3)
  1. HEPARIN [Suspect]
     Active Substance: HEPARIN SODIUM
  2. ENOXAPARIN [Suspect]
     Active Substance: ENOXAPARIN
     Dosage: 40 MG, QD
  3. ACETYLSALICYLIC ACID({=100 MG) [Suspect]
     Active Substance: ASPIRIN
     Dosage: 75 MG, QD

REACTIONS (9)
  - Peritonitis [Recovering/Resolving]
  - Metrorrhagia [Recovering/Resolving]
  - Abdominal wall haematoma [Recovering/Resolving]
  - Pre-eclampsia [Recovering/Resolving]
  - HELLP syndrome [Recovering/Resolving]
  - Exposure during pregnancy [None]
  - Anaemia [Recovering/Resolving]
  - Multiple organ dysfunction syndrome [Recovering/Resolving]
  - Disseminated intravascular coagulation [Recovering/Resolving]
